FAERS Safety Report 6394803-4 (Version None)
Quarter: 2009Q4

REPORT INFORMATION
  Report Type: 
  Country: None (occurrence: None)
  Receive Date: 20091009
  Receipt Date: 20090824
  Transmission Date: 20100525
  Serious: No
  Sender: FDA-Public Use
  Company Number: US-BAYER-200931419NA

PATIENT
  Age: 29 Year
  Sex: Female

DRUGS (4)
  1. YAZ [Suspect]
     Indication: DRUG USE FOR UNKNOWN INDICATION
     Dates: start: 20090816, end: 20090823
  2. CELEXA [Concomitant]
  3. AMITRIPTYLINE [Concomitant]
  4. NASACORT [Concomitant]

REACTIONS (1)
  - VAGINAL HAEMORRHAGE [None]
